FAERS Safety Report 12393574 (Version 1)
Quarter: 2016Q2

REPORT INFORMATION
  Report Type: Spontaneous
  Country: US (occurrence: None)
  Receive Date: 20160520
  Receipt Date: 20160520
  Transmission Date: 20160815
  Serious: No
  Sender: FDA-Public Use
  Company Number: None

PATIENT
  Age: 56 Year
  Sex: Female

DRUGS (1)
  1. FORTEO [Suspect]
     Active Substance: TERIPARATIDE
     Indication: SENILE OSTEOPOROSIS
     Route: 058
     Dates: start: 20160101

REACTIONS (5)
  - Arthralgia [None]
  - Musculoskeletal pain [None]
  - Neck pain [None]
  - Pain [None]
  - Back pain [None]

NARRATIVE: CASE EVENT DATE: 20160101
